FAERS Safety Report 14675765 (Version 1)
Quarter: 2018Q1

REPORT INFORMATION
  Report Type: Report from Study
  Country: None (occurrence: CA)
  Receive Date: 20180323
  Receipt Date: 20180323
  Transmission Date: 20180509
  Serious: Yes (Life-Threatening, Hospitalization)
  Sender: FDA-Public Use
  Company Number: CA-ABBVIE-18P-028-2291021-00

PATIENT
  Sex: Female

DRUGS (3)
  1. POMALIDOMIDE [Concomitant]
     Active Substance: POMALIDOMIDE
     Indication: PRODUCT USED FOR UNKNOWN INDICATION
     Dosage: 3 WEEKS PER MONTH
  2. VENCLEXTA [Suspect]
     Active Substance: VENETOCLAX
     Indication: PLASMA CELL MYELOMA RECURRENT
     Route: 048
     Dates: start: 20171107
  3. IXAZOMIB [Concomitant]
     Active Substance: IXAZOMIB
     Indication: PRODUCT USED FOR UNKNOWN INDICATION
     Dosage: 1 PILL PER WEEK

REACTIONS (2)
  - Off label use [Unknown]
  - Asthenia [Unknown]
